FAERS Safety Report 6626519-0 (Version None)
Quarter: 2010Q1

REPORT INFORMATION
  Report Type: 
  Country: None (occurrence: None)
  Receive Date: 20100310
  Receipt Date: 20100224
  Transmission Date: 20100710
  Serious: Yes (Disabling, Other)
  Sender: FDA-Public Use
  Company Number: US-ELI_LILLY_AND_COMPANY-US201001002547

PATIENT
  Sex: Male

DRUGS (15)
  1. CIALIS [Suspect]
     Indication: ERECTILE DYSFUNCTION
     Dosage: 20 MG, UNKNOWN
     Route: 065
     Dates: start: 20070101, end: 20090901
  2. LORAZEPAM [Concomitant]
     Dosage: 2 MG, EACH MORNING
     Route: 065
  3. LORAZEPAM [Concomitant]
     Dosage: 1 MG, EACH EVENING
  4. ANTIDEPRESSANTS [Concomitant]
     Dosage: UNK, UNKNOWN
     Route: 065
  5. ATENOLOL [Concomitant]
     Dosage: 50 MG, DAILY (1/D)
  6. ATENOLOL [Concomitant]
     Dosage: 75 MG, DAILY (1/D)
  7. ATENOLOL [Concomitant]
     Dosage: 25 MG, EACH EVENING
  8. VALTREX [Concomitant]
     Dosage: 1 G, DAILY (1/D)
  9. LISINOPRIL [Concomitant]
     Dosage: 2.5 MG, DAILY (1/D)
  10. LISINOPRIL [Concomitant]
     Dosage: 2.5 MG, QOD
  11. LOVASTATIN [Concomitant]
     Dosage: 40 MG, DAILY (1/D)
  12. NEURONTIN [Concomitant]
     Dosage: 300 MG, 3/D
  13. OMEPRAZOLE [Concomitant]
     Dosage: 20 MG, DAILY (1/D)
  14. LUNESTA [Concomitant]
  15. PAXIL [Concomitant]
     Dosage: 20 MG, EACH MORNING
     Dates: start: 20091001

REACTIONS (11)
  - ANXIETY [None]
  - BALANCE DISORDER [None]
  - DIZZINESS [None]
  - DRY EYE [None]
  - EYE OEDEMA [None]
  - HERPES SIMPLEX SEROLOGY POSITIVE [None]
  - HYPOAESTHESIA [None]
  - INSOMNIA [None]
  - OPTIC ISCHAEMIC NEUROPATHY [None]
  - STAPHYLOCOCCAL INFECTION [None]
  - URINARY TRACT INFECTION [None]
